FAERS Safety Report 7280133-5 (Version None)
Quarter: 2011Q1

REPORT INFORMATION
  Report Type: 
  Country: None (occurrence: None)
  Receive Date: 20110208
  Receipt Date: 20110127
  Transmission Date: 20110831
  Serious: Yes (Life-Threatening, Hospitalization)
  Sender: FDA-Public Use
  Company Number: FR-SANOFI-AVENTIS-2011SA005314

PATIENT
  Age: 81 Year
  Sex: Female

DRUGS (9)
  1. LASIX [Suspect]
     Route: 048
     Dates: end: 20110104
  2. STAGID [Suspect]
     Route: 048
     Dates: end: 20110104
  3. BISOPROLOL FUMARATE [Concomitant]
  4. ZYPREXA [Suspect]
     Route: 048
     Dates: end: 20110104
  5. DIFFU K [Suspect]
     Route: 048
     Dates: end: 20110104
  6. STILNOX [Suspect]
     Route: 048
     Dates: end: 20110104
  7. PREVISCAN [Suspect]
     Route: 048
     Dates: end: 20110104
  8. DIGOXIN [Concomitant]
  9. ATARAX [Suspect]
     Route: 048
     Dates: end: 20110104

REACTIONS (4)
  - HYPERTHERMIA [None]
  - SUBDURAL HAEMATOMA [None]
  - CONFUSIONAL STATE [None]
  - BRAIN OEDEMA [None]
